FAERS Safety Report 5195691-4 (Version None)
Quarter: 2006Q4

REPORT INFORMATION
  Report Type: 
  Country: None (occurrence: None)
  Receive Date: 20061226
  Receipt Date: 20061226
  Transmission Date: 20070319
  Serious: Yes (Other)
  Sender: FDA-Public Use
  Company Number: None

PATIENT
  Sex: Female
  Weight: 65.7716 kg

DRUGS (1)
  1. PROAIR HFA [Suspect]
     Indication: ASTHMA
     Dosage: 90 MCG AS NEEDED INHAL
     Route: 055
     Dates: start: 20061224, end: 20061225

REACTIONS (3)
  - DRUG HYPERSENSITIVITY [None]
  - STOMACH DISCOMFORT [None]
  - VOMITING PROJECTILE [None]
